FAERS Safety Report 7493630-4 (Version None)
Quarter: 2011Q2

REPORT INFORMATION
  Report Type: 
  Country: None (occurrence: None)
  Receive Date: 20110520
  Receipt Date: 20110509
  Transmission Date: 20111010
  Serious: Yes (Hospitalization, Other)
  Sender: FDA-Public Use
  Company Number: FR-JNJFOC-20110508150

PATIENT
  Sex: Female

DRUGS (6)
  1. PREDNISONE [Concomitant]
  2. TRIMEPRAZINE TARTRATE [Concomitant]
  3. ACETAMINOPHEN AND TRAMADOL HCL [Suspect]
     Indication: PRODUCT USED FOR UNKNOWN INDICATION
     Route: 048
     Dates: end: 20110219
  4. GLUCOR [Concomitant]
  5. ALVERINE CITRATE, SIMETICONE [Concomitant]
  6. ALVERINE CITRATE, SIMETICONE [Concomitant]

REACTIONS (1)
  - PANCREATITIS ACUTE [None]
